FAERS Safety Report 4771738-1 (Version None)
Quarter: 2005Q3

REPORT INFORMATION
  Report Type: 
  Country: None (occurrence: None)
  Receive Date: 20050916
  Receipt Date: 20050607
  Transmission Date: 20060218
  Serious: Yes (Other)
  Sender: FDA-Public Use
  Company Number: PHEH2005US06416

PATIENT
  Age: 40 Year
  Sex: Male

DRUGS (1)
  1. LESCOL XL [Suspect]
     Indication: HYPERCHOLESTEROLAEMIA
     Dosage: 80 MG, QD
     Dates: start: 20040401, end: 20050527

REACTIONS (27)
  - ABDOMINAL DISCOMFORT [None]
  - ALANINE AMINOTRANSFERASE INCREASED [None]
  - ASPARTATE AMINOTRANSFERASE INCREASED [None]
  - BACK PAIN [None]
  - BLOOD CREATINE PHOSPHOKINASE INCREASED [None]
  - CHRONIC SINUSITIS [None]
  - COORDINATION ABNORMAL [None]
  - DIZZINESS [None]
  - DRY EYE [None]
  - DUODENAL ULCER [None]
  - FACIAL PALSY [None]
  - HEADACHE [None]
  - HYPOAESTHESIA [None]
  - INFLUENZA LIKE ILLNESS [None]
  - INSOMNIA [None]
  - INTERVERTEBRAL DISC DEGENERATION [None]
  - LIGAMENT SPRAIN [None]
  - MUSCLE TWITCHING [None]
  - MYALGIA [None]
  - NASAL POLYPS [None]
  - NASAL SEPTUM DEVIATION [None]
  - NAUSEA [None]
  - NECK PAIN [None]
  - RED BLOOD CELL SEDIMENTATION RATE INCREASED [None]
  - SHOULDER PAIN [None]
  - SINUS HEADACHE [None]
  - VERTIGO [None]
